FAERS Safety Report 7190328-7 (Version None)
Quarter: 2010Q4

REPORT INFORMATION
  Report Type: 
  Country: None (occurrence: None)
  Receive Date: 20101223
  Receipt Date: 20101216
  Transmission Date: 20110411
  Serious: Yes (Other)
  Sender: FDA-Public Use
  Company Number: US-SHIRE-SPV1-2010-02199

PATIENT
  Sex: Female
  Weight: 49.887 kg

DRUGS (3)
  1. DAYTRANA [Suspect]
     Indication: ATTENTION DEFICIT/HYPERACTIVITY DISORDER
     Dosage: 30 MG, 1X/DAY:QD
     Route: 062
     Dates: start: 20060101, end: 20090101
  2. DAYTRANA [Suspect]
     Dosage: UNK MG, 1X/DAY:QD (30 MG PATCH IN 1/3 TO TOTAL UNKNOWN MG)
     Route: 062
     Dates: start: 20100101, end: 20100801
  3. DAYTRANA [Suspect]
     Dosage: UNK MG, 1X/DAY:QD (30 MG PATCH CUT IN 1/2 TO TOTAL UNKNOWN MG)
     Route: 062
     Dates: start: 20100801

REACTIONS (7)
  - HEPATIC FUNCTION ABNORMAL [None]
  - MOOD ALTERED [None]
  - OFF LABEL USE [None]
  - OROPHARYNGEAL PAIN [None]
  - TUBERCULOSIS [None]
  - URINARY TRACT DISORDER [None]
  - WRONG TECHNIQUE IN DRUG USAGE PROCESS [None]
